FAERS Safety Report 14598544 (Version 1)
Quarter: 2018Q1

REPORT INFORMATION
  Report Type: Report from Study
  Country: BR (occurrence: BR)
  Receive Date: 20180305
  Receipt Date: 20180305
  Transmission Date: 20180509
  Serious: Yes (Life-Threatening, Hospitalization, Other)
  Sender: FDA-Public Use
  Company Number: PHHY2018BR036213

PATIENT
  Age: 77 Year
  Sex: Female
  Weight: 65 kg

DRUGS (1)
  1. ACLASTA [Suspect]
     Active Substance: ZOLEDRONIC ACID
     Indication: OSTEOPOROSIS
     Dosage: 1 DF (5 MG/100ML), Q12MO
     Route: 042

REACTIONS (10)
  - Drug ineffective [Unknown]
  - Haemorrhoids [Recovered/Resolved]
  - Gallstone ileus [Recovered/Resolved]
  - Apparent death [Recovered/Resolved]
  - Intestinal haemorrhage [Recovered/Resolved]
  - Gastrointestinal disorder [Recovered/Resolved]
  - Muscular weakness [Unknown]
  - Knee deformity [Unknown]
  - Tendon discomfort [Unknown]
  - Constipation [Recovered/Resolved]

NARRATIVE: CASE EVENT DATE: 201704
